FAERS Safety Report 6124251-3 (Version None)
Quarter: 2009Q1

REPORT INFORMATION
  Report Type: 
  Country: None (occurrence: None)
  Receive Date: 20090319
  Receipt Date: 20090309
  Transmission Date: 20090719
  Serious: Yes (Death)
  Sender: FDA-Public Use
  Company Number: DE-WATSON-2009-01610

PATIENT
  Age: 55 Year
  Sex: Female

DRUGS (2)
  1. CHLOROQUINE (WATSON LABORATORIES) [Suspect]
     Indication: CUTANEOUS LUPUS ERYTHEMATOSUS
     Dosage: UNK
     Route: 048
     Dates: start: 19910101, end: 20040701
  2. CORTICOSTEROIDS, DERMATOLOGICAL PREPARATIONS [Suspect]
     Indication: CUTANEOUS LUPUS ERYTHEMATOSUS
     Route: 061

REACTIONS (1)
  - BREAST CANCER [None]
